FAERS Safety Report 10219437 (Version 1)
Quarter: 2014Q2

REPORT INFORMATION
  Report Type: Spontaneous
  Country: US (occurrence: None)
  Receive Date: 20140604
  Receipt Date: 20140604
  Transmission Date: 20141212
  Serious: No
  Sender: FDA-Public Use
  Company Number: None

PATIENT
  Age: 40 Year
  Sex: Female
  Weight: 81.65 kg

DRUGS (1)
  1. FENTORA [Suspect]
     Indication: ABDOMINAL PAIN UPPER
     Dosage: 600 MCG, AS NEEDED, BUCCAL
     Route: 002
     Dates: start: 20140501, end: 20140529

REACTIONS (3)
  - Vomiting [None]
  - Mouth ulceration [None]
  - Stomatitis [None]
